FAERS Safety Report 20010986 (Version 1)
Quarter: 2021Q4

REPORT INFORMATION
  Report Type: Other
  Country: GB (occurrence: GB)
  Receive Date: 20211029
  Receipt Date: 20211029
  Transmission Date: 20220304
  Serious: Yes (Other)
  Sender: FDA-Public Use
  Company Number: None

PATIENT
  Sex: Female

DRUGS (1)
  1. PREDNISOLONE [Suspect]
     Active Substance: PREDNISOLONE
     Indication: Product used for unknown indication
     Dosage: 30 MILLIGRAM, DAILY (TABLETS)
     Route: 048
     Dates: start: 20211019, end: 202110

REACTIONS (4)
  - Fatigue [Unknown]
  - Somnolence [Unknown]
  - Dizziness [Unknown]
  - Confusional state [Unknown]

NARRATIVE: CASE EVENT DATE: 20211019
